FAERS Safety Report 20866141 (Version 2)
Quarter: 2022Q4

REPORT INFORMATION
  Report Type: Spontaneous
  Country: CH (occurrence: CH)
  Receive Date: 20220524
  Receipt Date: 20221022
  Transmission Date: 20230113
  Serious: Yes (Other)
  Sender: FDA-Public Use
  Company Number: None

PATIENT
  Age: 68 Year
  Sex: Female

DRUGS (10)
  1. EPIRUBICIN [Suspect]
     Active Substance: EPIRUBICIN
     Indication: Invasive ductal breast carcinoma
     Dosage: 21-DAY CYCLE D1; CYCLICAL, UNIT DOSE: 130 MG,
     Route: 041
     Dates: start: 20211201
  2. PACLITAXEL [Suspect]
     Active Substance: PACLITAXEL
     Indication: Invasive ductal breast carcinoma
     Dosage: UNIT DOSE: 118 MG, FREQUENCY TIME : 1 WEEK, DURATION : 21 DAYS
     Route: 041
     Dates: start: 20220222, end: 20220315
  3. CYCLOPHOSPHAMIDE [Concomitant]
     Active Substance: CYCLOPHOSPHAMIDE
     Indication: Invasive ductal breast carcinoma
     Dosage: 21-DAY CYCLE D1; CYCLICAL, UNIT DOSE: 130 MG ,
     Route: 041
     Dates: start: 20211201
  4. FELODIPINE [Concomitant]
     Active Substance: FELODIPINE
     Indication: Product used for unknown indication
  5. DESLORATADINE [Concomitant]
     Active Substance: DESLORATADINE
     Indication: Product used for unknown indication
  6. CALCIUM\CHOLECALCIFEROL [Concomitant]
     Active Substance: CALCIUM\CHOLECALCIFEROL
     Indication: Product used for unknown indication
  7. VITAMIN D3 [Concomitant]
     Active Substance: CHOLECALCIFEROL
     Indication: Product used for unknown indication
  8. ZOLPIDEM [Concomitant]
     Active Substance: ZOLPIDEM TARTRATE
     Indication: Product used for unknown indication
     Dosage: AS NECESSARY
  9. INCRUSE ELLIPTA [Concomitant]
     Active Substance: UMECLIDINIUM BROMIDE
     Indication: Product used for unknown indication
     Dosage: 55MICROG
  10. vitamin A and C supplements [Concomitant]
     Indication: Product used for unknown indication

REACTIONS (1)
  - Lung disorder [Recovered/Resolved]

NARRATIVE: CASE EVENT DATE: 20220301
